FAERS Safety Report 8083950-7 (Version None)
Quarter: 2012Q1

REPORT INFORMATION
  Report Type: 
  Country: None (occurrence: None)
  Receive Date: 20120128
  Receipt Date: 20110118
  Transmission Date: 20120608
  Serious: No
  Sender: FDA-Public Use
  Company Number: US-ABBOTT-11P-163-0699102-00

PATIENT
  Sex: Male
  Weight: 81.72 kg

DRUGS (5)
  1. RISAQUAD [Concomitant]
     Indication: CROHN'S DISEASE
  2. HUMIRA [Suspect]
     Indication: CROHN'S DISEASE
     Dates: start: 20100501
  3. PENTAZA [Concomitant]
     Indication: CROHN'S DISEASE
  4. FISH OIL [Concomitant]
     Indication: MINERAL SUPPLEMENTATION
  5. VITAMIN TAB [Concomitant]
     Indication: VITAMIN SUPPLEMENTATION

REACTIONS (1)
  - INJECTION SITE PAIN [None]
